FAERS Safety Report 7260149-5 (Version None)
Quarter: 2011Q1

REPORT INFORMATION
  Report Type: 
  Country: None (occurrence: None)
  Receive Date: 20110130
  Receipt Date: 20101006
  Transmission Date: 20110831
  Serious: Yes (Hospitalization)
  Sender: FDA-Public Use
  Company Number: US-ABBOTT-10P-163-0676694-00

PATIENT
  Sex: Male
  Weight: 54.026 kg

DRUGS (1)
  1. HUMIRA [Suspect]
     Indication: CROHN'S DISEASE
     Dates: start: 20100711

REACTIONS (4)
  - CROHN'S DISEASE [None]
  - PERITONITIS [None]
  - GASTROINTESTINAL INFECTION [None]
  - SEPSIS [None]
